FAERS Safety Report 19477521 (Version 1)
Quarter: 2021Q2

REPORT INFORMATION
  Report Type: Spontaneous
  Country: US (occurrence: US)
  Receive Date: 20210630
  Receipt Date: 20210630
  Transmission Date: 20210717
  Serious: Yes (Life-Threatening)
  Sender: FDA-Public Use
  Company Number: None

PATIENT
  Age: 65 Year
  Sex: Male
  Weight: 101.6 kg

DRUGS (1)
  1. LEXISCAN [Suspect]
     Active Substance: REGADENOSON
     Indication: CARDIAC STRESS TEST
     Route: 042
     Dates: start: 20210608, end: 20210608

REACTIONS (7)
  - Refusal of treatment by patient [None]
  - Dyspnoea [None]
  - Anaphylactic reaction [None]
  - Lip swelling [None]
  - Paraesthesia oral [None]
  - Mouth swelling [None]
  - Stridor [None]

NARRATIVE: CASE EVENT DATE: 20210608
